FAERS Safety Report 5028028-1 (Version None)
Quarter: 2006Q2

REPORT INFORMATION
  Report Type: 
  Country: None (occurrence: None)
  Receive Date: 20060612
  Receipt Date: 20060526
  Transmission Date: 20061013
  Serious: Yes (Hospitalization)
  Sender: FDA-Public Use
  Company Number: 226054

PATIENT
  Age: 51 Year
  Sex: Female
  Weight: 58.6 kg

DRUGS (5)
  1. AVASTIN [Suspect]
     Indication: COLORECTAL CANCER METASTATIC
     Dosage: 300 MG Q2W INTRAVENOUS
     Route: 042
     Dates: start: 20051213
  2. OXALIPLATIN (OXALIPLATIN) [Concomitant]
  3. F-FU (FLUOROURACIL) [Concomitant]
  4. DUPHALAC [Concomitant]
  5. OMEPRAZOLE [Concomitant]

REACTIONS (1)
  - RENAL FAILURE [None]
